FAERS Safety Report 10346803 (Version 2)
Quarter: 2014Q3

REPORT INFORMATION
  Report Type: Spontaneous
  Country: FR (occurrence: FR)
  Receive Date: 20140729
  Receipt Date: 20140729
  Transmission Date: 20150326
  Serious: Yes (Congenital Anomaly, Other)
  Sender: FDA-Public Use
  Company Number: FR-009507513-2011SP048465

PATIENT
  Age: 63 Year
  Sex: Male
  Weight: 85 kg

DRUGS (19)
  1. COPEGUS [Suspect]
     Active Substance: RIBAVIRIN
     Indication: HEPATITIS C
     Dosage: 400 MG, TID
     Dates: start: 20110330, end: 20110810
  2. BIPERIDYS [Concomitant]
     Active Substance: DOMPERIDONE
     Dosage: 1 DF, TID
     Dates: start: 20110915, end: 201110
  3. DUPHALAC [Concomitant]
     Active Substance: LACTULOSE
     Dosage: 1 TO 2 (1 TO 2 PER DAY)
     Dates: start: 20111028, end: 201201
  4. LEVOTHYROX [Concomitant]
     Active Substance: LEVOTHYROXINE
     Dosage: 1 DF, QD
     Dates: start: 20110811, end: 201111
  5. VICTRELIS [Suspect]
     Active Substance: BOCEPREVIR
     Indication: HEPATITIS C
     Dosage: 4 DF, TID
     Route: 048
     Dates: start: 20110509, end: 20111028
  6. NEORECORMON [Concomitant]
     Active Substance: ERYTHROPOIETIN
     Indication: PRODUCT USED FOR UNKNOWN INDICATION
     Dosage: NEORECORMON 39000IU/0.6ML SYRINGUE
     Route: 058
     Dates: start: 20090610
  7. ALDACTONE [Concomitant]
     Active Substance: SPIRONOLACTONE
     Dosage: 2 DF, UNKNOWN
     Dates: start: 20110629, end: 2012
  8. LANZOR [Concomitant]
     Active Substance: LANSOPRAZOLE
     Indication: PRODUCT USED FOR UNKNOWN INDICATION
     Dosage: 15 MG, QAM
     Dates: start: 20110722
  9. NEORECORMON [Concomitant]
     Active Substance: ERYTHROPOIETIN
     Dosage: 0.6 ML, QW
     Dates: start: 20110615
  10. LANTUS [Concomitant]
     Active Substance: INSULIN GLARGINE
     Indication: PRODUCT USED FOR UNKNOWN INDICATION
  11. LEVOTHYROX [Concomitant]
     Active Substance: LEVOTHYROXINE
     Dosage: UNK
     Dates: start: 20111119
  12. CORGARD [Concomitant]
     Active Substance: NADOLOL
     Indication: PRODUCT USED FOR UNKNOWN INDICATION
  13. VIRAFERONPEG [Suspect]
     Active Substance: PEGINTERFERON ALFA-2B
     Dosage: 100 ?G, QW
     Route: 058
     Dates: start: 20110915, end: 20120502
  14. DAKTARIN [Concomitant]
     Active Substance: MICONAZOLE NITRATE
     Indication: PRODUCT USED FOR UNKNOWN INDICATION
     Dosage: ORAL GEL, 2 SPOONS QID
     Dates: start: 20110722, end: 201110
  15. MICONAZOLE [Concomitant]
     Active Substance: MICONAZOLE
     Indication: PRODUCT USED FOR UNKNOWN INDICATION
     Dosage: ORAL GEL, 2 SPOONS QID
     Dates: start: 20110722
  16. VIRAFERONPEG [Suspect]
     Active Substance: PEGINTERFERON ALFA-2B
     Indication: HEPATITIS C
     Dosage: 120 ?G, QW
     Route: 058
     Dates: start: 20110330
  17. SPECIAFOLDINE [Concomitant]
     Active Substance: FOLIC ACID
     Indication: PRODUCT USED FOR UNKNOWN INDICATION
  18. COPEGUS [Suspect]
     Active Substance: RIBAVIRIN
     Dosage: 200 MG, BID
     Dates: start: 20110811
  19. TOPLEXIL (ACETAMINOPHEN (+) GUAIFENESIN (+) OXOMEMAZINE (+) SODIUM BEN [Concomitant]
     Indication: PRODUCT USED FOR UNKNOWN INDICATION
     Dosage: TOPLEXIL 0.33MG/ML
     Dates: start: 20110722

REACTIONS (4)
  - Anaemia [Unknown]
  - Thrombocytopenia [Unknown]
  - Hepatocellular carcinoma [Recovered/Resolved]
  - Non-Hodgkin^s lymphoma [Recovered/Resolved]

NARRATIVE: CASE EVENT DATE: 20110908
